FAERS Safety Report 10990143 (Version 1)
Quarter: 2015Q1

REPORT INFORMATION
  Report Type: Spontaneous
  Country: US (occurrence: None)
  Receive Date: 20150326
  Receipt Date: 20150326
  Transmission Date: 20150721
  Serious: No
  Sender: FDA-Public Use
  Company Number: 1000074213

PATIENT
  Age: 88 Year
  Sex: Male

DRUGS (1)
  1. LINZESS [Suspect]
     Active Substance: LINACLOTIDE
     Dosage: 145 MCG (145 MCG, 1 IN 1 D)
     Dates: start: 201403, end: 2014

REACTIONS (4)
  - Abdominal distension [None]
  - Drug ineffective [None]
  - Off label use [None]
  - Constipation [None]

NARRATIVE: CASE EVENT DATE: 201501
